FAERS Safety Report 5042906-9 (Version None)
Quarter: 2006Q2

REPORT INFORMATION
  Report Type: 
  Country: None (occurrence: None)
  Receive Date: 20060627
  Receipt Date: 20060612
  Transmission Date: 20061013
  Serious: Yes (Other)
  Sender: FDA-Public Use
  Company Number: 2006068705

PATIENT
  Age: 38 Year
  Sex: Female

DRUGS (5)
  1. SULFASALAZINE [Suspect]
     Indication: ILL-DEFINED DISORDER
     Dosage: 4 GRAM (DAILY), ORAL
     Route: 048
     Dates: end: 20060520
  2. BIOFERMIN R (STREPTOCOCCUS FAECALIS) [Concomitant]
  3. MARZULENE S (LEVOGLUTAMIDE, SODIUM GUALENATE) [Concomitant]
  4. PREDNISOLONE [Concomitant]
  5. MESALAMINE [Concomitant]

REACTIONS (2)
  - LIVER DISORDER [None]
  - RASH [None]
